FAERS Safety Report 5526817-8 (Version None)
Quarter: 2007Q4

REPORT INFORMATION
  Report Type: 
  Country: None (occurrence: None)
  Receive Date: 20071127
  Receipt Date: 20071121
  Transmission Date: 20080405
  Serious: Yes (Hospitalization)
  Sender: FDA-Public Use
  Company Number: FR-WYE-G00647807

PATIENT
  Sex: Female
  Weight: 52 kg

DRUGS (2)
  1. ADVIL LIQUI-GELS [Suspect]
     Indication: BILIARY COLIC
     Dosage: 4 TABLETS A DAY
     Route: 048
     Dates: start: 20070313, end: 20070321
  2. SPASFON [Suspect]
     Indication: BILIARY COLIC
     Dosage: 3 TO 4 TABLETS A DAY
     Route: 048
     Dates: start: 20070313, end: 20070321

REACTIONS (1)
  - HEPATITIS CHOLESTATIC [None]
